FAERS Safety Report 14474630 (Version 1)
Quarter: 2018Q1

REPORT INFORMATION
  Report Type: Spontaneous
  Country: FR (occurrence: FR)
  Receive Date: 20180201
  Receipt Date: 20180201
  Transmission Date: 20180509
  Serious: Yes (Hospitalization)
  Sender: FDA-Public Use
  Company Number: PHHY2018FR013621

PATIENT

DRUGS (3)
  1. OXALIPLATIN. [Suspect]
     Active Substance: OXALIPLATIN
     Indication: SMALL INTESTINE CARCINOMA METASTATIC
     Route: 042
  2. FLUOROURACILE [Suspect]
     Active Substance: FLUOROURACIL
     Indication: SMALL INTESTINE CARCINOMA METASTATIC
     Route: 042
  3. IRINOTECAN [Suspect]
     Active Substance: IRINOTECAN
     Indication: SMALL INTESTINE CARCINOMA METASTATIC
     Route: 042

REACTIONS (4)
  - Neuropathy peripheral [Unknown]
  - General physical health deterioration [Recovering/Resolving]
  - Starvation [Recovering/Resolving]
  - Anaemia [Recovering/Resolving]

NARRATIVE: CASE EVENT DATE: 2014
